FAERS Safety Report 6912937-X (Version None)
Quarter: 2010Q3

REPORT INFORMATION
  Report Type: 
  Country: None (occurrence: None)
  Receive Date: 20100806
  Receipt Date: 20090407
  Transmission Date: 20110219
  Serious: No
  Sender: FDA-Public Use
  Company Number: US-PFIZER INC-2009170191

PATIENT

DRUGS (1)
  1. DETROL LA [Suspect]
     Dosage: 4MG/DAY

REACTIONS (1)
  - ALOPECIA [None]
